FAERS Safety Report 7077986-2 (Version None)
Quarter: 2010Q4

REPORT INFORMATION
  Report Type: 
  Country: None (occurrence: None)
  Receive Date: 20101101
  Receipt Date: 20100917
  Transmission Date: 20110411
  Serious: Yes (Disabling, Other)
  Sender: FDA-Public Use
  Company Number: US-BAXTER-2009BH001414

PATIENT
  Age: 43 Year
  Sex: Male
  Weight: 108 kg

DRUGS (22)
  1. HEPARIN SODIUM INJECTION [Suspect]
     Indication: VENOGRAM
     Route: 042
     Dates: start: 20070912, end: 20070921
  2. HEPARIN SODIUM INJECTION [Suspect]
     Indication: DEEP VEIN THROMBOSIS
     Route: 042
     Dates: start: 20070912, end: 20070921
  3. HEPARIN SODIUM INJECTION [Suspect]
     Route: 042
     Dates: start: 20070924, end: 20070924
  4. HEPARIN SODIUM INJECTION [Suspect]
     Route: 042
     Dates: start: 20070924, end: 20070924
  5. HEPARIN SODIUM INJECTION [Suspect]
     Route: 042
     Dates: start: 20070919, end: 20070919
  6. HEPARIN SODIUM INJECTION [Suspect]
     Route: 042
     Dates: start: 20070919, end: 20070919
  7. HEPARIN SODIUM INJECTION [Suspect]
     Route: 042
     Dates: start: 20070927, end: 20070928
  8. HEPARIN SODIUM INJECTION [Suspect]
     Route: 042
     Dates: start: 20070927, end: 20070928
  9. HEPARIN SODIUM INJECTION [Suspect]
     Route: 042
     Dates: start: 20070912, end: 20070912
  10. HEPARIN SODIUM INJECTION [Suspect]
     Route: 042
     Dates: start: 20070912, end: 20070912
  11. HEPARIN SODIUM INJECTION [Suspect]
     Route: 042
     Dates: start: 20071030, end: 20071030
  12. HEPARIN SODIUM INJECTION [Suspect]
     Route: 042
     Dates: start: 20071030, end: 20071030
  13. HEPARIN SODIUM INJECTION [Suspect]
     Route: 042
     Dates: start: 20070927, end: 20070927
  14. HEPARIN SODIUM INJECTION [Suspect]
     Route: 042
     Dates: start: 20070927, end: 20070927
  15. HEPARIN SODIUM 5,000 UNITS IN DEXTROSE 5% [Suspect]
     Indication: DEEP VEIN THROMBOSIS
     Route: 042
     Dates: start: 20070912, end: 20070912
  16. HEPARIN SODIUM 5,000 UNITS IN DEXTROSE 5% [Suspect]
     Route: 042
     Dates: start: 20070912, end: 20070921
  17. HEPARIN SODIUM 5,000 UNITS IN DEXTROSE 5% [Suspect]
     Route: 042
     Dates: start: 20070927, end: 20070928
  18. WARFARIN [Concomitant]
     Route: 065
  19. SIMVASTATIN [Concomitant]
     Route: 065
  20. MULTI-VITAMINS [Concomitant]
     Route: 065
  21. FISH OIL [Concomitant]
     Route: 065
  22. EZETIMIBE [Concomitant]
     Route: 065

REACTIONS (9)
  - BLOOD PRESSURE FLUCTUATION [None]
  - DRY GANGRENE [None]
  - HEPARIN-INDUCED THROMBOCYTOPENIA [None]
  - HYPERSENSITIVITY [None]
  - HYPOTENSION [None]
  - PAIN [None]
  - PERIPHERAL ISCHAEMIA [None]
  - SUBCLAVIAN VEIN THROMBOSIS [None]
  - THROMBOPHLEBITIS SUPERFICIAL [None]
